FAERS Safety Report 7227091-7 (Version None)
Quarter: 2011Q1

REPORT INFORMATION
  Report Type: 
  Country: None (occurrence: None)
  Receive Date: 20110114
  Receipt Date: 20110111
  Transmission Date: 20110831
  Serious: Yes (Hospitalization)
  Sender: FDA-Public Use
  Company Number: US-ROCHE-748999

PATIENT
  Sex: Male
  Weight: 99.4 kg

DRUGS (7)
  1. BEVACIZUMAB [Suspect]
     Dosage: DATE OF LAST DOSE PRIOR TO SAE: 23 NOVEMBER 2010
     Route: 042
     Dates: start: 20100809, end: 20101123
  2. CASODEX [Concomitant]
  3. LEXAPRO [Concomitant]
  4. LISINOPRIL [Concomitant]
  5. DOCETAXEL [Suspect]
     Route: 042
     Dates: start: 20100809, end: 20101013
  6. LISINOPRIL [Concomitant]
  7. NORVASC [Concomitant]

REACTIONS (1)
  - PROTEINURIA [None]
